FAERS Safety Report 8488752-5 (Version None)
Quarter: 2012Q2

REPORT INFORMATION
  Report Type: 
  Country: None (occurrence: None)
  Receive Date: 20120626
  Receipt Date: 20120611
  Transmission Date: 20120825
  Serious: Yes (Death)
  Sender: FDA-Public Use
  Company Number: JP-2012-15492

PATIENT
  Age: 78 Year
  Sex: Male
  Weight: 78 kg

DRUGS (10)
  1. WARFARIN SODIUM [Concomitant]
  2. SAMSCA [Suspect]
     Indication: CARDIAC FAILURE
     Dosage: 7.5 MG MILLIGRAM(S), QD, ORAL ; 15 MG MILLIGRAM(S), QD, ORAL
     Route: 048
     Dates: start: 20120526, end: 20120527
  3. SAMSCA [Suspect]
     Indication: CARDIAC FAILURE
     Dosage: 7.5 MG MILLIGRAM(S), QD, ORAL ; 15 MG MILLIGRAM(S), QD, ORAL
     Route: 048
     Dates: start: 20120525, end: 20120525
  4. DIGOXIN [Concomitant]
  5. TORSEMIDE [Concomitant]
  6. AMIODARONE HCL [Concomitant]
  7. PRAVASTATIN [Concomitant]
  8. LASIX [Concomitant]
  9. ASPIRIN [Concomitant]
  10. TICLOPIDINE HCL [Concomitant]

REACTIONS (10)
  - CARDIAC FAILURE [None]
  - PLATELET COUNT DECREASED [None]
  - CONDITION AGGRAVATED [None]
  - BLOOD UREA INCREASED [None]
  - PYREXIA [None]
  - BLOOD PRESSURE DECREASED [None]
  - RESPIRATORY FAILURE [None]
  - HYPERNATRAEMIA [None]
  - DEPRESSED LEVEL OF CONSCIOUSNESS [None]
  - BLOOD CREATININE INCREASED [None]
